FAERS Safety Report 20258056 (Version 3)
Quarter: 2022Q1

REPORT INFORMATION
  Report Type: Spontaneous
  Country: US (occurrence: US)
  Receive Date: 20211230
  Receipt Date: 20220114
  Transmission Date: 20220424
  Serious: No
  Sender: FDA-Public Use
  Company Number: US-SA-SAC20211228001012

PATIENT
  Sex: Female

DRUGS (2)
  1. DUPIXENT [Suspect]
     Active Substance: DUPILUMAB
     Indication: Dermatitis atopic
     Dosage: 300 MG, QOW
     Route: 058
     Dates: start: 202002, end: 20211019
  2. OTEZLA [Suspect]
     Active Substance: APREMILAST
     Dosage: UNK

REACTIONS (4)
  - Injection site pain [Unknown]
  - Nasopharyngitis [Recovering/Resolving]
  - Sinus disorder [Recovering/Resolving]
  - Illness [Recovering/Resolving]
